FAERS Safety Report 10144236 (Version 5)
Quarter: 2015Q2

REPORT INFORMATION
  Report Type: Spontaneous
  Country: US (occurrence: US)
  Receive Date: 20140430
  Receipt Date: 20150505
  Transmission Date: 20150821
  Serious: Yes (Life-Threatening, Hospitalization, Disabling)
  Sender: FDA-Public Use
  Company Number: US-ACTELION-A-NJ2014-98111

PATIENT
  Age: 79 Year
  Sex: Female

DRUGS (9)
  1. VENTAVIS [Suspect]
     Active Substance: ILOPROST
     Indication: PULMONARY ARTERIAL HYPERTENSION
     Dosage: 5 MCG, 6-9XDAILY
     Route: 055
     Dates: start: 20140411
  2. OXYGEN. [Concomitant]
     Active Substance: OXYGEN
  3. LASIX [Concomitant]
     Active Substance: FUROSEMIDE
  4. ALDACTONE [Concomitant]
     Active Substance: SPIRONOLACTONE
  5. REVATIO [Concomitant]
     Active Substance: SILDENAFIL CITRATE
  6. REMERON [Concomitant]
     Active Substance: MIRTAZAPINE
  7. TOPROL XL [Concomitant]
     Active Substance: METOPROLOL SUCCINATE
  8. VENTAVIS [Suspect]
     Active Substance: ILOPROST
     Dosage: 2.5 UNK, 6 XDAY
     Route: 055
     Dates: end: 2014
  9. MAGNESIUM [Concomitant]
     Active Substance: MAGNESIUM

REACTIONS (4)
  - Fall [Not Recovered/Not Resolved]
  - Cervical vertebral fracture [Recovering/Resolving]
  - Hypotension [Recovered/Resolved]
  - Syncope [Recovered/Resolved]

NARRATIVE: CASE EVENT DATE: 201404
